FAERS Safety Report 7801417-5 (Version None)
Quarter: 2011Q4

REPORT INFORMATION
  Report Type: 
  Country: None (occurrence: None)
  Receive Date: 20111005
  Receipt Date: 20110921
  Transmission Date: 20120403
  Serious: Yes (Hospitalization)
  Sender: FDA-Public Use
  Company Number: 1000024290

PATIENT
  Age: 72 Year
  Sex: Female
  Weight: 70 kg

DRUGS (8)
  1. CALTRATE (CALCIUM CARBONATE) [Concomitant]
  2. CARDIZEM [Concomitant]
  3. DIABEX (METFORMIN HYDROCHLORIDE) (METFORMIN HYROCHLORIDE) [Concomitant]
  4. AVANDIA [Suspect]
     Indication: DIABETES MELLITUS
  5. ZANTAC (RANITIDINE HYDROCHLORIDE) (RANITIDINE HYROCHLORIDE) [Concomitant]
  6. INSULIN NOS (INSULIN) (INSULIN) [Suspect]
  7. CITALOPRAM HYDROBROMIDE [Suspect]
  8. ZOCOR [Concomitant]

REACTIONS (2)
  - ELECTROCARDIOGRAM T WAVE INVERSION [None]
  - ELECTROCARDIOGRAM QT PROLONGED [None]
